FAERS Safety Report 8546827-6 (Version None)
Quarter: 2012Q3

REPORT INFORMATION
  Report Type: 
  Country: None (occurrence: None)
  Receive Date: 20120727
  Receipt Date: 20120206
  Transmission Date: 20120928
  Serious: No
  Sender: FDA-Public Use
  Company Number: US-ASTRAZENECA-2012SE08282

PATIENT
  Age: 54 Year
  Sex: Male

DRUGS (1)
  1. SEROQUEL [Suspect]
     Indication: BIPOLAR DISORDER
     Route: 048

REACTIONS (8)
  - ADVERSE EVENT [None]
  - IRRITABILITY [None]
  - PHYSICAL ASSAULT [None]
  - DEPRESSION [None]
  - DEPERSONALISATION [None]
  - DRUG DOSE OMISSION [None]
  - INJURY [None]
  - WRONG DRUG ADMINISTERED [None]
